FAERS Safety Report 6968658-0 (Version None)
Quarter: 2010Q3

REPORT INFORMATION
  Report Type: 
  Country: None (occurrence: None)
  Receive Date: 20100907
  Receipt Date: 20100902
  Transmission Date: 20110219
  Serious: Yes (Hospitalization)
  Sender: FDA-Public Use
  Company Number: CZ-AMGEN-KDC428534

PATIENT
  Sex: Male

DRUGS (10)
  1. PANITUMUMAB [Suspect]
     Indication: SQUAMOUS CELL CARCINOMA
     Route: 042
     Dates: start: 20100722, end: 20100722
  2. CISPLATIN [Suspect]
     Route: 042
     Dates: start: 20100722, end: 20100722
  3. DOCETAXEL [Suspect]
     Route: 042
     Dates: start: 20100722, end: 20100722
  4. SECTRAL [Concomitant]
     Route: 048
     Dates: start: 20000101
  5. LISINOPRIL [Concomitant]
     Route: 048
     Dates: start: 20000101, end: 20100813
  6. FELODIPINE [Concomitant]
     Route: 048
     Dates: start: 20000101, end: 20100804
  7. DEXAMETASON [Concomitant]
     Dates: start: 20100722
  8. ONDANSETRON [Concomitant]
     Dates: start: 20100722
  9. HYPNOGEN [Concomitant]
     Dates: start: 20100720, end: 20100817
  10. ESCIN [Concomitant]

REACTIONS (3)
  - APHTHOUS STOMATITIS [None]
  - DIARRHOEA [None]
  - FALL [None]
